FAERS Safety Report 8200575-0 (Version None)
Quarter: 2012Q1

REPORT INFORMATION
  Report Type: 
  Country: None (occurrence: None)
  Receive Date: 20120307
  Receipt Date: 20120227
  Transmission Date: 20120608
  Serious: Yes (Hospitalization)
  Sender: FDA-Public Use
  Company Number: 2012SP005622

PATIENT
  Sex: Female

DRUGS (2)
  1. PEG-INTRON [Suspect]
     Indication: HEPATITIS C
  2. LERCANIDIPINE [Suspect]
     Indication: PRODUCT USED FOR UNKNOWN INDICATION

REACTIONS (8)
  - HAEMORRHAGE [None]
  - ALOPECIA [None]
  - FATIGUE [None]
  - GINGIVAL BLEEDING [None]
  - INFUSION RELATED REACTION [None]
  - BLOOD COUNT ABNORMAL [None]
  - FALL [None]
  - MOUTH ULCERATION [None]
